FAERS Safety Report 8383228-8 (Version None)
Quarter: 2012Q2

REPORT INFORMATION
  Report Type: 
  Country: None (occurrence: None)
  Receive Date: 20120522
  Receipt Date: 20120508
  Transmission Date: 20120825
  Serious: Yes (Other)
  Sender: FDA-Public Use
  Company Number: 12000678

PATIENT
  Age: 56 Year
  Sex: Female
  Weight: 108.8 kg

DRUGS (14)
  1. LYRICA [Suspect]
     Indication: FIBROMYALGIA
     Dosage: 75 MG, BID, ORAL : 150 MG, BID, ORAL : 75 MG, BID, ORAL
     Route: 048
     Dates: start: 20050101
  2. CITALOPRAM HYDROBROMIDE [Suspect]
     Indication: DEPRESSION
  3. CALCITRIOL [Suspect]
     Indication: PRODUCT USED FOR UNKNOWN INDICATION
  4. VITAMIN D [Suspect]
     Indication: PRODUCT USED FOR UNKNOWN INDICATION
  5. LEVOXYL [Suspect]
     Indication: THYROIDECTOMY
     Dosage: 100 MCG, QD
     Dates: start: 20120101
  6. CYMBALTA [Suspect]
     Indication: DEPRESSION
  7. SULFASALAZINE [Suspect]
     Indication: ARTHRITIS
     Dosage: 1000 MG, BID
  8. LIPITOR [Suspect]
     Indication: BLOOD CHOLESTEROL INCREASED
     Dosage: 40 MG, QD, ORAL
     Route: 048
  9. ASCORBIC ACID [Suspect]
     Indication: PRODUCT USED FOR UNKNOWN INDICATION
  10. LOMOTIL [Suspect]
     Indication: COLITIS
     Dosage: 0.25 MG, TID
  11. HYDROCHLOROTHIAZIDE [Suspect]
     Indication: OEDEMA PERIPHERAL
     Dosage: 25 MG,QD
  12. KLOR-CON [Suspect]
     Indication: BLOOD POTASSIUM DECREASED
     Dosage: 10 MEQ, QD  : 20 MEQ, QD
  13. SALSALATE (SALSALATE) [Suspect]
     Indication: ARTHRITIS
     Dosage: 1500 MG, BID
  14. METFORMIN HCL [Suspect]
     Indication: DIABETES MELLITUS
     Dosage: 50 MG, QD

REACTIONS (4)
  - DIABETES MELLITUS [None]
  - BLOOD POTASSIUM DECREASED [None]
  - THYROID CANCER [None]
  - DIZZINESS [None]
